FAERS Safety Report 6598846-7 (Version None)
Quarter: 2010Q1

REPORT INFORMATION
  Report Type: 
  Country: None (occurrence: None)
  Receive Date: 20100217
  Receipt Date: 20100210
  Transmission Date: 20100710
  Serious: Yes (Life-Threatening, Hospitalization)
  Sender: FDA-Public Use
  Company Number: PD120

PATIENT
  Age: 75 Year
  Sex: Male

DRUGS (2)
  1. LEVETIRACETAM [Suspect]
     Indication: CONVULSION
     Dosage: 1 G/DAY
  2. CLOPIDOGREL [Concomitant]

REACTIONS (1)
  - CEREBRAL HAEMORRHAGE [None]
